FAERS Safety Report 7954469-6 (Version None)
Quarter: 2011Q4

REPORT INFORMATION
  Report Type: 
  Country: None (occurrence: None)
  Receive Date: 20111202
  Receipt Date: 20111130
  Transmission Date: 20120403
  Serious: Yes (Death, Hospitalization)
  Sender: FDA-Public Use
  Company Number: DE-BRISTOL-MYERS SQUIBB COMPANY-15515877

PATIENT
  Age: 67 Year
  Sex: Male
  Weight: 71 kg

DRUGS (11)
  1. FENISTIL [Concomitant]
     Dates: start: 20101210
  2. ZOMETA [Concomitant]
     Dates: start: 20101105
  3. ALLOPURINOL [Concomitant]
  4. VITAMIN B-12 [Concomitant]
     Dates: start: 20101101
  5. ALIMTA [Suspect]
     Indication: NON-SMALL CELL LUNG CANCER STAGE IV
     Dosage: LAST INF:04JAN2011 NO OF INF:3
     Route: 065
     Dates: start: 20101117
  6. IBUPROFEN [Concomitant]
  7. FOLSAN [Concomitant]
     Dates: start: 20101101
  8. LEVOTHYROXINE SODIUM [Concomitant]
  9. NECITUMUMAB [Suspect]
     Indication: NON-SMALL CELL LUNG CANCER STAGE IV
     Dosage: LAST INF:10JAN2011 NO OF INF:6
     Route: 065
     Dates: start: 20101117
  10. PANTOPRAZOLE SODIUM [Concomitant]
  11. CISPLATIN [Suspect]
     Indication: NON-SMALL CELL LUNG CANCER STAGE IV
     Dosage: NO OF INF:04JAN2011 NO OF INF:3
     Route: 065
     Dates: start: 20101117

REACTIONS (5)
  - PNEUMONIA [None]
  - NEUTROPENIA [None]
  - HERPES OESOPHAGITIS [None]
  - NEOPLASM MALIGNANT [None]
  - ABDOMINAL PAIN UPPER [None]
